FAERS Safety Report 5215307-8 (Version None)
Quarter: 2007Q1

REPORT INFORMATION
  Report Type: 
  Country: None (occurrence: None)
  Receive Date: 20070116
  Receipt Date: 20070115
  Transmission Date: 20070707
  Serious: Yes (Other)
  Sender: FDA-Public Use
  Company Number: HQWYE81207APR05

PATIENT
  Age: 53 Year
  Sex: Female

DRUGS (7)
  1. RAPAMUNE [Suspect]
     Indication: IMMUNOSUPPRESSION
     Dosage: 2 MG 1X PER 1 DAY
     Route: 048
     Dates: start: 20050223
  2. RAPAMUNE [Suspect]
     Indication: PROPHYLAXIS AGAINST TRANSPLANT REJECTION
     Dosage: 2 MG 1X PER 1 DAY
     Route: 048
     Dates: start: 20050223
  3. PREDNISONE TAB [Concomitant]
  4. CYCLOSPORINE [Concomitant]
  5. ERYTHROPOIETIN (ERYTHROPOIETIN) [Concomitant]
  6. OMEPRAZOLE [Concomitant]
  7. BACTRIM [Concomitant]

REACTIONS (1)
  - URINARY FISTULA [None]
